FAERS Safety Report 16951496 (Version 1)
Quarter: 2019Q4

REPORT INFORMATION
  Report Type: Spontaneous
  Country: US (occurrence: US)
  Receive Date: 20191022
  Receipt Date: 20191022
  Transmission Date: 20200122
  Serious: No
  Sender: FDA-Public Use
  Company Number: None

PATIENT
  Age: 33 Year
  Sex: Female
  Weight: 90 kg

DRUGS (1)
  1. OXYCODONE 10MG IR [Suspect]
     Active Substance: OXYCODONE
     Route: 048
     Dates: start: 20191019

REACTIONS (6)
  - Drug ineffective [None]
  - Withdrawal syndrome [None]
  - Diarrhoea [None]
  - Headache [None]
  - Product substitution issue [None]
  - Product complaint [None]
